FAERS Safety Report 11043302 (Version 1)
Quarter: 2015Q2

REPORT INFORMATION
  Report Type: Spontaneous
  Country: US (occurrence: None)
  Receive Date: 20150416
  Receipt Date: 20150416
  Transmission Date: 20150821
  Serious: Yes (Other)
  Sender: FDA-Public Use
  Company Number: None

PATIENT
  Age: 49 Year
  Sex: Female

DRUGS (1)
  1. HUMIRA [Suspect]
     Active Substance: ADALIMUMAB
     Dosage: INJECTABLE STARTER DOSE SUBCUTANEOUS
     Route: 058
     Dates: start: 201503, end: 201504

REACTIONS (5)
  - Pruritus [None]
  - Swelling [None]
  - Condition aggravated [None]
  - Erythema [None]
  - Contusion [None]

NARRATIVE: CASE EVENT DATE: 20150414
